FAERS Safety Report 7113665-0 (Version None)
Quarter: 2010Q4

REPORT INFORMATION
  Report Type: 
  Country: None (occurrence: None)
  Receive Date: 20101119
  Receipt Date: 20101115
  Transmission Date: 20110411
  Serious: Yes (Other)
  Sender: FDA-Public Use
  Company Number: ES-ROCHE-742175

PATIENT

DRUGS (6)
  1. VALGANCICLOVIR HCL [Suspect]
     Route: 048
  2. MYCOPHENOLATE MOFETIL [Suspect]
     Route: 065
  3. TACROLIMUS [Suspect]
     Route: 065
  4. STEROID NOS [Suspect]
     Route: 065
  5. BASILIXIMAB [Suspect]
     Dosage: DRUG: BAXILIXIMAB
     Route: 065
  6. ANTI-THYMOCYTE GLOBULIN NOS [Suspect]
     Dosage: DRUG: THYMOGLOBULIN
     Route: 065

REACTIONS (7)
  - CYTOMEGALOVIRUS INFECTION [None]
  - GASTROINTESTINAL DISORDER [None]
  - GRAFT LOSS [None]
  - THROMBOCYTOPENIA [None]
  - THROMBOTIC MICROANGIOPATHY [None]
  - VASCULITIS [None]
  - VIRAL INFECTION [None]
